FAERS Safety Report 19469865 (Version 1)
Quarter: 2021Q2

REPORT INFORMATION
  Report Type: Spontaneous
  Country: US (occurrence: US)
  Receive Date: 20210629
  Receipt Date: 20210629
  Transmission Date: 20210717
  Serious: Yes (Other)
  Sender: FDA-Public Use
  Company Number: US-SA-2021SA210662

PATIENT
  Age: 18 Year
  Sex: Female

DRUGS (1)
  1. DUPILUMAB [Suspect]
     Active Substance: DUPILUMAB
     Dosage: UNK
     Dates: start: 2020

REACTIONS (3)
  - Eosinophilic granulomatosis with polyangiitis [Unknown]
  - Pyrexia [Unknown]
  - Malaise [Unknown]
